FAERS Safety Report 21606272 (Version 2)
Quarter: 2023Q1

REPORT INFORMATION
  Report Type: Report from Study
  Country: US (occurrence: US)
  Receive Date: 20221117
  Receipt Date: 20230313
  Transmission Date: 20230418
  Serious: No
  Sender: FDA-Public Use
  Company Number: US-ABBVIE-4169205

PATIENT
  Sex: Female

DRUGS (1)
  1. RINVOQ [Suspect]
     Active Substance: UPADACITINIB
     Indication: Colitis ulcerative
     Route: 048
     Dates: start: 202208, end: 202209

REACTIONS (7)
  - Frequent bowel movements [Recovering/Resolving]
  - Nausea [Recovering/Resolving]
  - Acne [Recovering/Resolving]
  - Depression [Unknown]
  - Fatigue [Unknown]
  - Blister [Recovering/Resolving]
  - Haemorrhage [Recovering/Resolving]
